FAERS Safety Report 4382560-2 (Version None)
Quarter: 2004Q2

REPORT INFORMATION
  Report Type: 
  Country: None (occurrence: None)
  Receive Date: 20040602
  Receipt Date: 20040520
  Transmission Date: 20050107
  Serious: Yes (Other)
  Sender: FDA-Public Use
  Company Number: 200410314BCA

PATIENT
  Age: 49 Year
  Sex: Male

DRUGS (14)
  1. PLASBUMIN-25 [Suspect]
     Indication: BLOOD PRODUCT TRANSFUSION
     Dosage: 200 ML, TOTAL DAILY, INTRAVENOUS
     Route: 042
     Dates: start: 19850101
  2. PLASBUMIN-25 [Suspect]
     Indication: BLOOD PRODUCT TRANSFUSION
     Dosage: 200 ML, TOTAL DAILY, INTRAVENOUS
     Route: 042
     Dates: start: 19850101
  3. PLASBUMIN-25 [Suspect]
     Indication: BLOOD PRODUCT TRANSFUSION
     Dosage: 200 ML, TOTAL DAILY, INTRAVENOUS
     Route: 042
     Dates: start: 19850401
  4. PLASBUMIN-25 [Suspect]
     Indication: BLOOD PRODUCT TRANSFUSION
     Dosage: 200 ML, TOTAL DAILY, INTRAVENOUS
     Route: 042
     Dates: start: 19850401
  5. PLASBUMIN-25 [Suspect]
     Indication: BLOOD PRODUCT TRANSFUSION
     Dosage: 200 ML, TOTAL DAILY, INTRAVENOUS
     Route: 042
     Dates: start: 19850501
  6. PLASBUMIN-25 [Suspect]
     Indication: BLOOD PRODUCT TRANSFUSION
     Dosage: 200 ML, TOTAL DAILY, INTRAVENOUS
     Route: 042
     Dates: start: 19900813
  7. PLASBUMIN-25 [Suspect]
     Indication: BLOOD PRODUCT TRANSFUSION
     Dosage: 200 ML, TOTAL DAILY, INTRAVENOUS
     Route: 042
     Dates: start: 19900813
  8. PLASBUMIN-25 [Suspect]
  9. PLASBUMIN-25 [Suspect]
  10. PLASBUMIN-25 [Suspect]
  11. PLASBUMIN-25 [Suspect]
  12. PLASBUMIN-25 [Suspect]
  13. PLASBUMIN-25 [Suspect]
  14. PLASBUMIN-25 [Suspect]

REACTIONS (1)
  - HEPATITIS C POSITIVE [None]
